FAERS Safety Report 4516855-6 (Version None)
Quarter: 2004Q4

REPORT INFORMATION
  Report Type: 
  Country: None (occurrence: None)
  Receive Date: 20041202
  Receipt Date: 20041125
  Transmission Date: 20050328
  Serious: Yes (Death, Life-Threatening)
  Sender: FDA-Public Use
  Company Number: FR-GLAXOSMITHKLINE-B0358585A

PATIENT
  Age: 81 Year
  Sex: Female
  Weight: 55 kg

DRUGS (22)
  1. AUGMENTIN '125' [Suspect]
     Indication: INFECTION
     Dosage: 1G THREE TIMES PER DAY
     Route: 048
     Dates: start: 20030211, end: 20030218
  2. PREVISCAN [Suspect]
     Dosage: 5MG PER DAY
     Route: 048
     Dates: start: 20030217, end: 20030218
  3. KARDEGIC [Suspect]
     Indication: ARRHYTHMIA
     Dosage: 75MG PER DAY
     Route: 048
     Dates: start: 20030212, end: 20030216
  4. LOVENOX [Suspect]
     Indication: ARRHYTHMIA
     Dosage: .4MG TWICE PER DAY
     Route: 058
     Dates: start: 20030209, end: 20030218
  5. OFLOCET [Suspect]
     Indication: INFECTION
     Dosage: 200MG PER DAY
     Route: 048
     Dates: start: 20030211, end: 20030218
  6. COVERSYL [Concomitant]
     Route: 065
  7. NITROGLYCERIN [Concomitant]
     Route: 065
  8. CORDARONE [Concomitant]
     Route: 065
  9. TARDYFERON [Concomitant]
     Route: 065
  10. ADANCOR [Concomitant]
     Route: 065
  11. MODOPAR [Concomitant]
     Route: 065
  12. GAVISCON [Concomitant]
     Route: 065
  13. STILNOX [Concomitant]
     Route: 065
  14. ACETAMINOPHEN [Concomitant]
     Route: 065
  15. OMEPRAZOLE [Concomitant]
     Route: 065
  16. VOLTAREN [Concomitant]
     Route: 065
  17. SERC [Concomitant]
     Route: 065
  18. CYCLO 3 [Concomitant]
     Route: 065
  19. TANAKAN [Concomitant]
     Route: 065
  20. TRANSILANE [Concomitant]
     Route: 065
  21. DIGOXIN [Concomitant]
     Indication: ACUTE PULMONARY OEDEMA
     Route: 065
     Dates: start: 20030209
  22. DIURETIC [Concomitant]
     Indication: ACUTE PULMONARY OEDEMA
     Route: 065

REACTIONS (12)
  - ARTERIAL HAEMORRHAGE [None]
  - ARTHRALGIA [None]
  - BACK PAIN [None]
  - BLOOD PRESSURE DECREASED [None]
  - DIARRHOEA [None]
  - DRUG INTERACTION [None]
  - GENERAL PHYSICAL HEALTH DETERIORATION [None]
  - HAEMOGLOBIN DECREASED [None]
  - MULTI-ORGAN FAILURE [None]
  - RETROPERITONEAL HAEMATOMA [None]
  - RETROPERITONEAL HAEMORRHAGE [None]
  - SHOCK [None]
